FAERS Safety Report 7799987-9 (Version None)
Quarter: 2011Q4

REPORT INFORMATION
  Report Type: 
  Country: None (occurrence: None)
  Receive Date: 20111006
  Receipt Date: 20110923
  Transmission Date: 20120403
  Serious: No
  Sender: FDA-Public Use
  Company Number: US-B.I. PHARMACEUTICALS,INC./RIDGEFIELD-2011-BP-19940BP

PATIENT
  Sex: Male

DRUGS (17)
  1. LASIX [Concomitant]
     Indication: FLUID RETENTION
     Dosage: 40 MG
     Route: 048
     Dates: start: 20110701
  2. ASCORBIC ACID [Concomitant]
  3. ZANTAC [Concomitant]
  4. VICODIN [Concomitant]
     Indication: OSTEOARTHRITIS
     Route: 048
     Dates: start: 19980101
  5. VICODIN [Concomitant]
     Indication: ARTHRALGIA
  6. LASIX [Concomitant]
     Indication: HYPERTENSION
  7. CO-Q10 [Concomitant]
  8. MONOPRIL [Concomitant]
     Indication: HYPERTENSION
     Dosage: 10 MG
     Route: 048
     Dates: start: 20060101
  9. PRADAXA [Suspect]
     Indication: CEREBROVASCULAR ACCIDENT
     Dosage: 225 MG
     Route: 048
     Dates: start: 20110826
  10. TYLENOL-500 [Concomitant]
     Indication: OSTEOARTHRITIS
     Dosage: 2600 MG
     Route: 048
  11. PREDNISONE [Suspect]
     Indication: POLYARTHRITIS
     Dosage: 10 MG
     Route: 048
     Dates: start: 20110801
  12. PRADAXA [Suspect]
     Indication: ATRIAL FIBRILLATION
     Dosage: 300 MG
     Route: 048
     Dates: start: 20110801, end: 20110824
  13. INDERAL [Concomitant]
     Indication: HYPERTENSION
     Dosage: 40 MG
     Route: 048
     Dates: start: 19900101
  14. CASODEX [Concomitant]
     Indication: PROSTATE CANCER
     Dosage: 50 MG
     Route: 048
  15. VITAMIN D [Concomitant]
  16. CALCIUM CARBONATE [Concomitant]
  17. TYLENOL-500 [Concomitant]
     Indication: ARTHRALGIA

REACTIONS (7)
  - DIZZINESS [None]
  - ARTHRALGIA [None]
  - GASTROOESOPHAGEAL REFLUX DISEASE [None]
  - OESOPHAGEAL PAIN [None]
  - DYSPEPSIA [None]
  - NAUSEA [None]
  - ABDOMINAL DISCOMFORT [None]
